FAERS Safety Report 6648250-8 (Version None)
Quarter: 2010Q1

REPORT INFORMATION
  Report Type: 
  Country: None (occurrence: None)
  Receive Date: 20100324
  Receipt Date: 20100315
  Transmission Date: 20100710
  Serious: Yes (Hospitalization, Disabling)
  Sender: FDA-Public Use
  Company Number: US-ROCHE-408927

PATIENT
  Sex: Female
  Weight: 56.7 kg

DRUGS (2)
  1. ACCUTANE [Suspect]
     Route: 048
     Dates: start: 19961001, end: 19970321
  2. ACCUTANE [Suspect]
     Route: 048
     Dates: start: 19970527, end: 19970928

REACTIONS (13)
  - ANAEMIA [None]
  - COLITIS [None]
  - COLITIS ULCERATIVE [None]
  - GASTROINTESTINAL DISORDER [None]
  - HEADACHE [None]
  - HEPATITIS ACUTE [None]
  - HYDRONEPHROSIS [None]
  - HYDROURETER [None]
  - INFLAMMATORY BOWEL DISEASE [None]
  - INTESTINAL HAEMORRHAGE [None]
  - IRRITABILITY [None]
  - MULTI-ORGAN DISORDER [None]
  - RECTAL HAEMORRHAGE [None]
